FAERS Safety Report 13754841 (Version 1)
Quarter: 2017Q3

REPORT INFORMATION
  Report Type: Spontaneous
  Country: GB (occurrence: GB)
  Receive Date: 20170714
  Receipt Date: 20170714
  Transmission Date: 20171127
  Serious: Yes (Congenital Anomaly, Other)
  Sender: FDA-Public Use
  Company Number: GB-GILEAD-2017-0282529

PATIENT
  Age: 67 Year
  Sex: Male

DRUGS (10)
  1. THIAMINE. [Concomitant]
     Active Substance: THIAMINE
  2. TEICOPLANIN [Suspect]
     Active Substance: TEICOPLANIN
     Indication: PRODUCT USED FOR UNKNOWN INDICATION
     Dosage: NOT KNOWN.
     Route: 042
     Dates: start: 20170627
  3. AZTREONAM LYSINE [Suspect]
     Active Substance: AZTREONAM LYSINE
     Indication: PRODUCT USED FOR UNKNOWN INDICATION
     Dosage: NOT KNOWN.
     Route: 042
     Dates: start: 20170627, end: 20170627
  4. VITAMIN B COMPOUND                 /00003501/ [Concomitant]
  5. SERETIDE [Concomitant]
     Active Substance: FLUTICASONE PROPIONATE\SALMETEROL XINAFOATE
  6. OMEPRAZOLE. [Concomitant]
     Active Substance: OMEPRAZOLE
  7. SALBUTAMOL [Concomitant]
     Active Substance: ALBUTEROL
  8. ENOXAPARIN [Concomitant]
     Active Substance: ENOXAPARIN
  9. SERTRALINE HYDROCHLORIDE. [Concomitant]
     Active Substance: SERTRALINE HYDROCHLORIDE
  10. TIOTROPIUM [Concomitant]
     Active Substance: TIOTROPIUM

REACTIONS (1)
  - Anaphylactic reaction [Not Recovered/Not Resolved]

NARRATIVE: CASE EVENT DATE: 20170627
